FAERS Safety Report 15500309 (Version 2)
Quarter: 2018Q4

REPORT INFORMATION
  Report Type: Spontaneous
  Country: US (occurrence: US)
  Receive Date: 20181015
  Receipt Date: 20181204
  Transmission Date: 20190205
  Serious: Yes (Other)
  Sender: FDA-Public Use
  Company Number: US-OTSUKA-2018_032943

PATIENT
  Sex: Female

DRUGS (3)
  1. LAMICTAL [Concomitant]
     Active Substance: LAMOTRIGINE
     Indication: PRODUCT USED FOR UNKNOWN INDICATION
     Dosage: 250, UNK
     Route: 065
  2. ABILIFY MAINTENA [Suspect]
     Active Substance: ARIPIPRAZOLE
     Indication: BIPOLAR I DISORDER
     Dosage: UNK
     Route: 065
  3. ABILIFY [Suspect]
     Active Substance: ARIPIPRAZOLE
     Indication: BIPOLAR I DISORDER
     Dosage: UNK
     Route: 048

REACTIONS (27)
  - Stress [Unknown]
  - Stomatitis [Unknown]
  - Anaemia [Unknown]
  - Depression [Unknown]
  - Gambling disorder [Unknown]
  - Diarrhoea [Unknown]
  - Dermatitis contact [Unknown]
  - Polyuria [Unknown]
  - Blood glucose increased [Unknown]
  - Anxiety [Unknown]
  - Vision blurred [Unknown]
  - Regurgitation [Unknown]
  - Contusion [Unknown]
  - Psychotic disorder [Unknown]
  - Dyspepsia [Unknown]
  - Serum ferritin increased [Unknown]
  - Haemorrhage [Unknown]
  - Gait disturbance [Unknown]
  - Hypersensitivity [Unknown]
  - Constipation [Unknown]
  - Insomnia [Unknown]
  - Psychiatric decompensation [Unknown]
  - Malaise [Unknown]
  - Rash [Unknown]
  - Breast cancer [Not Recovered/Not Resolved]
  - Starvation [Unknown]
  - Cold sweat [Unknown]
